FAERS Safety Report 18277473 (Version 1)
Quarter: 2020Q3

REPORT INFORMATION
  Report Type: Spontaneous
  Country: NL (occurrence: NL)
  Receive Date: 20200917
  Receipt Date: 20200917
  Transmission Date: 20201103
  Serious: Yes (Other)
  Sender: FDA-Public Use
  Company Number: NL-SUN PHARMACEUTICAL INDUSTRIES LTD-2020RR-261253

PATIENT
  Age: 66 Year
  Sex: Male
  Weight: 101 kg

DRUGS (10)
  1. OXYCODON CAPSULE  5MG / BRAND NAME NOT SPECIFIEDOXYCODON CAPSULE  5MG [Concomitant]
     Indication: PRODUCT USED FOR UNKNOWN INDICATION
     Dosage: 1 TOT 4 X DAAGS NAAR BEHOEFTE BIJ DO ; AS NECESSARY, CAPSULE
     Route: 050
  2. METFORMINE TABLET 500MG / BRAND NAME NOT SPECIFIEDMETFORMINE TABL... [Concomitant]
     Indication: PRODUCT USED FOR UNKNOWN INDICATION
     Dosage: 2 X DAAGS, TABLET
     Route: 050
  3. BICALUTAMIDE. [Suspect]
     Active Substance: BICALUTAMIDE
     Indication: PROSTATE CANCER
     Dosage: 1 X DGS, TABLET
     Route: 050
     Dates: start: 20150818
  4. MULTIVITAMINEN [Concomitant]
     Indication: PRODUCT USED FOR UNKNOWN INDICATION
     Route: 050
  5. SIMVASTATINE TABLET FO 40MG / BRAND NAME NOT SPECIFIEDSIMVASTATINE ... [Interacting]
     Active Substance: SIMVASTATIN
     Indication: PROPHYLAXIS
     Dosage: 1 X DGS, FILM?COATED TABLET
     Route: 050
     Dates: start: 2004, end: 20160419
  6. LIRAGLUTIDE INJVLST 6MG/ML / VICTOZA INJVLST 6MG/ML WWSP 3MLVICTOZA... [Concomitant]
     Indication: PRODUCT USED FOR UNKNOWN INDICATION
     Dosage: 1,8 MG 1 X DAAGS, SOLUTION FOR INJECTION
     Route: 050
  7. GOSERELINE IMPLANTATIESTIFT 10,8MG / ZOLADEX IMPLANTATIESTIFT 10,8M... [Concomitant]
     Indication: PRODUCT USED FOR UNKNOWN INDICATION
     Dosage: 1 X PER 3 MAANDEN, 3 MONTH, IMPLANT
     Route: 050
  8. GLICLAZIDE TABLET MGA 80MG / BRAND NAME NOT SPECIFIEDGLICLAZIDE TAB... [Concomitant]
     Indication: PRODUCT USED FOR UNKNOWN INDICATION
     Dosage: 2 X DAAGS, PROLONGED?RELEASE TABLET
     Route: 050
  9. OXYCODON TABLET MGA   5MG / BRAND NAME NOT SPECIFIEDOXYCODON TABLET... [Concomitant]
     Indication: PRODUCT USED FOR UNKNOWN INDICATION
     Dosage: 2 X DAAGS 3 X 5 MG, PROLONGED?RELEASE TABLET
     Route: 050
  10. OMEPRAZOL CAPSULE MGA 20MG ? NON?CURRENT DRUG / BRAND NAME NOT SPEC... [Concomitant]
     Indication: PRODUCT USED FOR UNKNOWN INDICATION
     Dosage: 1 X DAAGS, PROLONGED?RELEASE CAPSULE
     Route: 050

REACTIONS (3)
  - Osteonecrosis [Recovered/Resolved]
  - Weight increased [Unknown]
  - Blood glucose fluctuation [Not Recovered/Not Resolved]

NARRATIVE: CASE EVENT DATE: 201509
